FAERS Safety Report 11611861 (Version 1)
Quarter: 2015Q4

REPORT INFORMATION
  Report Type: Spontaneous
  Country: CA (occurrence: CA)
  Receive Date: 20151008
  Receipt Date: 20151008
  Transmission Date: 20160304
  Serious: Yes (Disabling)
  Sender: FDA-Public Use
  Company Number: CA-TEVA-599202ACC

PATIENT
  Age: 67 Year
  Sex: Male

DRUGS (2)
  1. OLMETEC [Concomitant]
     Active Substance: OLMESARTAN MEDOXOMIL
  2. ATORVASTATIN CALCIUM. [Suspect]
     Active Substance: ATORVASTATIN CALCIUM
     Indication: LIPIDS ABNORMAL
     Dosage: 10 MILLIGRAM DAILY;
     Route: 065

REACTIONS (2)
  - Hypoaesthesia [Recovered/Resolved]
  - Product substitution issue [Recovered/Resolved]
